FAERS Safety Report 5415471-1 (Version None)
Quarter: 2007Q3

REPORT INFORMATION
  Report Type: 
  Country: None (occurrence: None)
  Receive Date: 20070815
  Receipt Date: 20070803
  Transmission Date: 20080115
  Serious: Yes (Hospitalization)
  Sender: FDA-Public Use
  Company Number: US-ROCHE-510703

PATIENT
  Age: 45 Year
  Sex: Male

DRUGS (4)
  1. CAPECITABINE [Suspect]
     Indication: METASTATIC RENAL CELL CARCINOMA
     Dosage: ADMINISTERED FOR 14 DAYS EVERY 21 DAY CYCLE
     Route: 065
     Dates: start: 20070614, end: 20070627
  2. SATRAPLATIN [Suspect]
     Indication: METASTATIC RENAL CELL CARCINOMA
     Dosage: 200 MG DAILY FOR 5 DAYS OF EVERY 21 DAY CYCLE
     Route: 048
     Dates: start: 20070614, end: 20070618
  3. MEGESTROL ACETATE [Concomitant]
     Dates: start: 20070604
  4. HYDROCODONE BITARTRATE [Concomitant]
     Dosage: ADMINISTERED EVERY 4-6 HOURS AS NEEDED REPORTED AS HYDROCODONE/APAP
     Dates: start: 20070604

REACTIONS (1)
  - THROMBOTIC THROMBOCYTOPENIC PURPURA [None]
